FAERS Safety Report 20684619 (Version 1)
Quarter: 2022Q2

REPORT INFORMATION
  Report Type: Spontaneous
  Country: US (occurrence: None)
  Receive Date: 20220406
  Receipt Date: 20220406
  Transmission Date: 20220721
  Serious: Yes (Hospitalization, Other)
  Sender: FDA-Public Use
  Company Number: None

PATIENT
  Age: 62 Year
  Sex: Male
  Weight: 96.75 kg

DRUGS (1)
  1. PILOCARPINE HYDROCHLORIDE [Suspect]
     Active Substance: PILOCARPINE HYDROCHLORIDE
     Indication: Presbyopia
     Dosage: FREQUENCY : DAILY;?
     Route: 047
     Dates: start: 20220122, end: 20220122

REACTIONS (6)
  - Eye pain [None]
  - Vitreous floaters [None]
  - Visual impairment [None]
  - Retinal tear [None]
  - Vitreous haemorrhage [None]
  - Vitreous detachment [None]

NARRATIVE: CASE EVENT DATE: 20220122
